FAERS Safety Report 12087497 (Version 1)
Quarter: 2016Q1

REPORT INFORMATION
  Report Type: Spontaneous
  Country: US (occurrence: US)
  Receive Date: 20160217
  Receipt Date: 20160217
  Transmission Date: 20160526
  Serious: No
  Sender: FDA-Public Use
  Company Number: US-TAKEDA-2015TUS015570

PATIENT
  Age: 73 Year
  Sex: Male

DRUGS (1)
  1. PREVACID [Suspect]
     Active Substance: LANSOPRAZOLE
     Indication: DYSPEPSIA
     Dosage: UNK
     Route: 048
     Dates: end: 20151014

REACTIONS (3)
  - Diarrhoea [Recovering/Resolving]
  - Product use issue [Unknown]
  - Incorrect dose administered [Unknown]
